FAERS Safety Report 9354215 (Version 1)
Quarter: 2013Q2

REPORT INFORMATION
  Report Type: Spontaneous
  Country: FR (occurrence: FR)
  Receive Date: 20130618
  Receipt Date: 20130618
  Transmission Date: 20140414
  Serious: Yes (Other)
  Sender: FDA-Public Use
  Company Number: FR-TEVA-413155ISR

PATIENT
  Age: 85 Year
  Sex: Male

DRUGS (13)
  1. FUROSEMIDE TEVA 40 MG [Suspect]
     Indication: CARDIAC FAILURE
     Dosage: 160 MILLIGRAM DAILY; DIVISIBLE TABLETS
     Route: 048
  2. FUROSEMIDE TEVA 40 MG [Suspect]
     Route: 048
     Dates: start: 20130503
  3. GLARGINE INSULIN (BACTERIA/ESCHERICHIA COLI) [Concomitant]
     Route: 048
  4. AMIODARONE [Concomitant]
     Route: 048
  5. SPIRONOLACTONE [Concomitant]
     Route: 048
  6. PREVISCAN [Concomitant]
     Route: 048
  7. SODIUM PRAVASTATIN [Concomitant]
     Route: 048
  8. REPAGLINIDE [Concomitant]
     Route: 048
  9. BRICANYL [Concomitant]
  10. LISPRO INSULIN [Concomitant]
     Route: 058
  11. IMPORTAL [Concomitant]
     Dosage: AS REQUIRED
  12. EDUCTYL [Concomitant]
     Dosage: AS REQUIRED
  13. TRINIPATCH [Concomitant]

REACTIONS (5)
  - Somnolence [Recovered/Resolved]
  - Dyspnoea [Not Recovered/Not Resolved]
  - Mobility decreased [Unknown]
  - Rales [Not Recovered/Not Resolved]
  - Cough [Not Recovered/Not Resolved]
